FAERS Safety Report 4297465-5 (Version None)
Quarter: 2004Q1

REPORT INFORMATION
  Report Type: 
  Country: None (occurrence: None)
  Receive Date: 20040213
  Receipt Date: 20040204
  Transmission Date: 20041129
  Serious: Yes (Hospitalization)
  Sender: FDA-Public Use
  Company Number: HQWYE384915JAN04

PATIENT
  Age: 81 Year
  Sex: Female

DRUGS (9)
  1. CORDARONE [Suspect]
     Dosage: 200 MG 1X PER 1 DAY
     Route: 048
     Dates: start: 20000101, end: 20030626
  2. CLONIDINE [Suspect]
     Dosage: 0.075 MG 1X PER 1 DAY
     Route: 048
     Dates: end: 20030625
  3. DIAMICRON (GLICLAZIDE, ) [Suspect]
     Indication: DIABETES MELLITUS
     Dosage: 80 MG 3X PER 1 DAY
     Route: 048
     Dates: end: 20030624
  4. GLUCOR (ACARBOSE, ) [Suspect]
     Indication: DIABETES MELLITUS
     Dosage: 50 MG 3X PER 1 DAY
     Route: 048
     Dates: end: 20030624
  5. SEROPRAM (CITALOPRAM HYDROBROMIDE, ) [Suspect]
     Indication: DIABETES MELLITUS
     Dosage: 20 MG 1X PER 1 DAY
     Route: 048
  6. ALDACTAZIDE (HYDROCHLOROTHIAZIDE/SPIRONOLACTONE) [Concomitant]
  7. MORRAL (OMEPRAZOLE) [Concomitant]
  8. TANAKAN (GINGKO TREE LEAVES EXTRACT) [Concomitant]
  9. PENTOXIFYLLINE [Concomitant]

REACTIONS (12)
  - CHOLELITHIASIS [None]
  - CHOLESTASIS [None]
  - CONFUSIONAL STATE [None]
  - CYTOLYTIC HEPATITIS [None]
  - DIABETIC COMPLICATION [None]
  - ECHOGRAPHY ABNORMAL [None]
  - HEPATITIS [None]
  - MENTAL STATUS CHANGES [None]
  - PANCREATIC CARCINOMA [None]
  - PROTEIN URINE [None]
  - RALES [None]
  - SINUS BRADYCARDIA [None]
